FAERS Safety Report 6601267-1 (Version None)
Quarter: 2010Q1

REPORT INFORMATION
  Report Type: 
  Country: None (occurrence: None)
  Receive Date: 20100224
  Receipt Date: 20100224
  Transmission Date: 20100710
  Serious: Yes (Hospitalization)
  Sender: FDA-Public Use
  Company Number: None

PATIENT
  Age: 43 Year
  Sex: Female
  Weight: 56.9 kg

DRUGS (1)
  1. LAMICTAL CD [Suspect]
     Indication: DEPRESSION
     Dosage: 50 MG DAILY ORAL 047
     Route: 048

REACTIONS (3)
  - COAGULOPATHY [None]
  - ENCEPHALOPATHY [None]
  - JAUNDICE [None]
